FAERS Safety Report 7142301-2 (Version None)
Quarter: 2010Q4

REPORT INFORMATION
  Report Type: 
  Country: None (occurrence: None)
  Receive Date: 20101207
  Receipt Date: 20101202
  Transmission Date: 20110411
  Serious: No
  Sender: FDA-Public Use
  Company Number: US-PFIZER INC-2010163125

PATIENT
  Sex: Female
  Weight: 37.2 kg

DRUGS (15)
  1. PREMARIN [Suspect]
     Indication: OFF LABEL USE
     Dosage: 0.625 MG, 1X/DAY
     Route: 067
     Dates: start: 20101123
  2. PREMARIN [Suspect]
     Indication: AMENORRHOEA
  3. DIAZEPAM [Concomitant]
     Indication: CONVULSION
     Dosage: 1 MG, 1X/DAY
     Route: 048
  4. DIAZEPAM [Concomitant]
     Dosage: 2 MG, 1X/DAY
     Route: 048
  5. DIAZEPAM [Concomitant]
     Dosage: 5 MG, AS NEEDED
     Route: 048
  6. NITROFURANTOIN [Concomitant]
     Indication: DISABILITY
     Dosage: 100 MG, 1X/DAY
     Route: 048
  7. OMEPRAZOLE [Concomitant]
     Indication: GASTRIC DISORDER
     Dosage: 20 MG, 2X/DAY
     Route: 048
  8. CARBAMAZEPINE [Concomitant]
     Dosage: 400 MG, 2X/DAY
     Route: 048
  9. CALCIUM CARBONATE/COLECALCIFEROL [Concomitant]
     Route: 048
  10. VAGIFEM [Concomitant]
     Dosage: 25 UG, UNK
     Route: 048
  11. SENNA [Concomitant]
     Dosage: 846 MG, 2X/DAY
     Route: 048
  12. TIZANIDINE [Concomitant]
     Indication: PSYCHOMOTOR HYPERACTIVITY
     Dosage: 2 MG, 3X/DAY
     Route: 048
  13. PREGABALIN [Concomitant]
     Dosage: 200 MG, 2X/DAY
     Route: 048
  14. LEVETIRACETAM [Concomitant]
     Dosage: 1000 MG, 2X/DAY
     Route: 048
  15. LORATADINE [Concomitant]
     Dosage: 10 MG, 1X/DAY

REACTIONS (1)
  - VULVOVAGINAL ERYTHEMA [None]
